FAERS Safety Report 9066677 (Version 1)
Quarter: 2013Q1

REPORT INFORMATION
  Report Type: Report from Study
  Country: US (occurrence: US)
  Receive Date: 20130131
  Receipt Date: 20130131
  Transmission Date: 20140127
  Serious: No
  Sender: FDA-Public Use
  Company Number: US-ABBOTT-12P-163-1015885-00

PATIENT
  Age: 53 Year
  Sex: Female

DRUGS (5)
  1. HUMIRA [Suspect]
     Indication: CROHN^S DISEASE
     Route: 058
  2. UNITHROID [Concomitant]
     Indication: THYROID DISORDER
     Dosage: IN THE MORNING
  3. GENERIC SANDIMMUNE [Concomitant]
     Indication: PRODUCT USED FOR UNKNOWN INDICATION
     Dosage: 2 AND A HALF A DAY
  4. MERCAPTOPURINE 6 MP [Concomitant]
     Indication: CROHN^S DISEASE
  5. LIALDA [Concomitant]
     Indication: CROHN^S DISEASE
     Dosage: 4 TABLETS

REACTIONS (4)
  - Device malfunction [Not Recovered/Not Resolved]
  - Injection site haemorrhage [Not Recovered/Not Resolved]
  - Back injury [Unknown]
  - Tinea pedis [Unknown]
